FAERS Safety Report 16006804 (Version 2)
Quarter: 2019Q1

REPORT INFORMATION
  Report Type: Spontaneous
  Country: CN (occurrence: CN)
  Receive Date: 20190226
  Receipt Date: 20190301
  Transmission Date: 20190418
  Serious: Yes (Hospitalization)
  Sender: FDA-Public Use
  Company Number: CN-ASTRAZENECA-2019SE30335

PATIENT
  Age: 29 Year
  Sex: Female

DRUGS (2)
  1. BRICANYL [Suspect]
     Active Substance: TERBUTALINE SULFATE
     Indication: LARYNGITIS
     Route: 055
     Dates: start: 20190217, end: 20190217
  2. PULMICORT RESPULES [Suspect]
     Active Substance: BUDESONIDE
     Indication: LARYNGITIS
     Route: 055
     Dates: start: 20190217, end: 20190217

REACTIONS (1)
  - Asthma [Not Recovered/Not Resolved]

NARRATIVE: CASE EVENT DATE: 20190217
